FAERS Safety Report 12637412 (Version 1)
Quarter: 2016Q3

REPORT INFORMATION
  Report Type: Spontaneous
  Country: US (occurrence: US)
  Receive Date: 20160809
  Receipt Date: 20160809
  Transmission Date: 20161109
  Serious: No
  Sender: FDA-Public Use
  Company Number: US-BEH-2016061171

PATIENT
  Sex: Female
  Weight: 136 kg

DRUGS (28)
  1. SALINE MIST SPRAY [Concomitant]
  2. NORMAL SALINE [Concomitant]
     Active Substance: SODIUM CHLORIDE
  3. VITAMIN A [Concomitant]
     Active Substance: VITAMIN A
  4. PRIVIGEN [Suspect]
     Active Substance: HUMAN IMMUNOGLOBULIN G
     Route: 042
  5. PRIVIGEN [Suspect]
     Active Substance: HUMAN IMMUNOGLOBULIN G
     Route: 042
  6. EPIPEN [Concomitant]
     Active Substance: EPINEPHRINE
  7. FLONASE [Concomitant]
     Active Substance: FLUTICASONE PROPIONATE
  8. VITAMIN D3 [Concomitant]
     Active Substance: CHOLECALCIFEROL
  9. NORVASC [Concomitant]
     Active Substance: AMLODIPINE BESYLATE
  10. GLUCOSAMINE AND CHONDROITIN [Concomitant]
     Active Substance: CHONDROITIN SULFATE (BOVINE)\GLUCOSAMINE HYDROCHLORIDE
  11. DEXAMETHASONE. [Concomitant]
     Active Substance: DEXAMETHASONE
  12. LISINOPRIL. [Concomitant]
     Active Substance: LISINOPRIL
  13. DIPHENHYDRAMINE. [Concomitant]
     Active Substance: DIPHENHYDRAMINE
  14. RESTORIL [Concomitant]
     Active Substance: TEMAZEPAM
  15. MAXAIR [Concomitant]
     Active Substance: PIRBUTEROL ACETATE
  16. PRIVIGEN [Suspect]
     Active Substance: HUMAN IMMUNOGLOBULIN G
     Indication: IMMUNODEFICIENCY COMMON VARIABLE
     Route: 042
  17. SODIUM CHLORIDE. [Concomitant]
     Active Substance: SODIUM CHLORIDE
  18. KLONOPIN [Concomitant]
     Active Substance: CLONAZEPAM
  19. DAILY MULTIPLE VITAMIN [Concomitant]
  20. PROBIOTIC [Concomitant]
     Active Substance: PROBIOTICS NOS
  21. FLUOXETINE [Concomitant]
     Active Substance: FLUOXETINE HYDROCHLORIDE
  22. VITAMIN C [Concomitant]
     Active Substance: ASCORBIC ACID
  23. VITAMIN B12 [Concomitant]
     Active Substance: CYANOCOBALAMIN
  24. HYDROCHLOROTHIAZIDE. [Concomitant]
     Active Substance: HYDROCHLOROTHIAZIDE
  25. CLONIDINE. [Concomitant]
     Active Substance: CLONIDINE
  26. SUPRAX [Concomitant]
     Active Substance: CEFIXIME
  27. SELENIUM [Concomitant]
     Active Substance: SELENIUM
  28. VITAMIN B COMPLEX [Concomitant]
     Active Substance: CYANOCOBALAMIN\DEXPANTHENOL\NIACINAMIDE\PYRIDOXINE HYDROCHLORIDE\RIBOFLAVIN 5^-PHOSPHATE SODIUM\THIAMINE HYDROCHLORIDE\VITAMIN B COMPLEX

REACTIONS (1)
  - Sinusitis [Unknown]
